FAERS Safety Report 24809385 (Version 2)
Quarter: 2025Q1

REPORT INFORMATION
  Report Type: Spontaneous
  Country: US (occurrence: US)
  Receive Date: 20250106
  Receipt Date: 20250124
  Transmission Date: 20250408
  Serious: No
  Sender: JOHNSON AND JOHNSON
  Company Number: US-JNJFOC-20241232049

PATIENT
  Sex: Male

DRUGS (12)
  1. RISPERDAL [Suspect]
     Active Substance: RISPERIDONE
     Indication: Depression
     Route: 048
  2. RISPERDAL [Suspect]
     Active Substance: RISPERIDONE
     Indication: Insomnia
  3. RISPERDAL [Suspect]
     Active Substance: RISPERIDONE
     Indication: Anxiety
  4. RISPERDAL [Suspect]
     Active Substance: RISPERIDONE
     Indication: Acute psychosis
  5. CELECOXIB [Suspect]
     Active Substance: CELECOXIB
     Indication: Depression
     Route: 065
  6. CELECOXIB [Suspect]
     Active Substance: CELECOXIB
     Indication: Insomnia
  7. CELECOXIB [Suspect]
     Active Substance: CELECOXIB
     Indication: Anxiety
  8. CELECOXIB [Suspect]
     Active Substance: CELECOXIB
     Indication: Acute psychosis
  9. TRAZODONE [Suspect]
     Active Substance: TRAZODONE HYDROCHLORIDE
     Indication: Depression
     Route: 065
  10. TRAZODONE [Suspect]
     Active Substance: TRAZODONE HYDROCHLORIDE
     Indication: Insomnia
  11. TRAZODONE [Suspect]
     Active Substance: TRAZODONE HYDROCHLORIDE
     Indication: Anxiety
  12. TRAZODONE [Suspect]
     Active Substance: TRAZODONE HYDROCHLORIDE
     Indication: Acute psychosis

REACTIONS (1)
  - Drug ineffective [Unknown]
